FAERS Safety Report 18936936 (Version 1)
Quarter: 2021Q1

REPORT INFORMATION
  Report Type: Spontaneous
  Country: US (occurrence: US)
  Receive Date: 20210224
  Receipt Date: 20210224
  Transmission Date: 20210420
  Serious: Yes (Other)
  Sender: FDA-Public Use
  Company Number: US-TEVA-2021-US-1883973

PATIENT
  Sex: Male

DRUGS (14)
  1. HYSINGLA ER [Concomitant]
     Active Substance: HYDROCODONE BITARTRATE
  2. DAZIDOX [Concomitant]
  3. TRAMADOL ER [Concomitant]
     Active Substance: TRAMADOL HYDROCHLORIDE
  4. HYDROCODONE AND ACETAMINOPHEN [Concomitant]
     Active Substance: ACETAMINOPHEN\HYDROCODONE
  5. OXYCODONE IR [Suspect]
     Active Substance: OXYCODONE
     Route: 065
     Dates: start: 2011
  6. OXYCODONE IR [Suspect]
     Active Substance: OXYCODONE
     Route: 065
     Dates: start: 2019
  7. VICODIN [Suspect]
     Active Substance: ACETAMINOPHEN\HYDROCODONE BITARTRATE
     Indication: HAND FRACTURE
     Route: 065
     Dates: start: 2003, end: 2008
  8. DHC PLUS [Concomitant]
     Active Substance: ACETAMINOPHEN\CAFFEINE\DIHYDROCODEINE BITARTRATE
  9. PALLADONE [Concomitant]
     Active Substance: HYDROMORPHONE HYDROCHLORIDE
  10. HYDROMORPHONE [Concomitant]
     Active Substance: HYDROMORPHONE
  11. OXYCODONE IR [Suspect]
     Active Substance: OXYCODONE
     Indication: PAIN
     Route: 065
  12. VICODIN [Suspect]
     Active Substance: ACETAMINOPHEN\HYDROCODONE BITARTRATE
     Indication: PAIN
     Route: 065
     Dates: start: 2001
  13. OXYFAST [Concomitant]
     Active Substance: OXYCODONE
  14. MSIR [Concomitant]
     Active Substance: MORPHINE SULFATE

REACTIONS (11)
  - Pain [Unknown]
  - Drug dependence [Unknown]
  - Anxiety [Unknown]
  - Fatigue [Unknown]
  - Weight decreased [Unknown]
  - Loss of employment [Unknown]
  - Marital problem [Unknown]
  - Abnormal behaviour [Unknown]
  - Constipation [Unknown]
  - Depression [Unknown]
  - Decreased appetite [Unknown]
